FAERS Safety Report 8393890-1 (Version None)
Quarter: 2012Q2

REPORT INFORMATION
  Report Type: 
  Country: None (occurrence: None)
  Receive Date: 20120516
  Receipt Date: 20120510
  Transmission Date: 20120825
  Serious: Yes (Life-Threatening, Hospitalization, Disabling, Other)
  Sender: FDA-Public Use
  Company Number: 2007-160622-NL

PATIENT
  Age: 31 Year
  Sex: Female
  Weight: 82 kg

DRUGS (5)
  1. TRAMADOL HCL [Suspect]
     Indication: PRODUCT USED FOR UNKNOWN INDICATION
  2. DICLOFENAC SODIUM [Suspect]
     Indication: BACK PAIN
     Dates: start: 20040429, end: 20040429
  3. DESOGESTRE/ETHINYL ESTRADIOL [Suspect]
     Indication: CONTRACEPTION
     Dosage: ;PO
     Route: 048
     Dates: start: 20040425, end: 20040527
  4. PAROXETINE [Suspect]
     Indication: ANXIETY
     Dosage: 1 DF;
     Dates: start: 20020701
  5. AKARIN [Concomitant]

REACTIONS (15)
  - CARDIAC ARREST [None]
  - VOMITING [None]
  - HEADACHE [None]
  - HYPERHIDROSIS [None]
  - PARAESTHESIA [None]
  - BACK PAIN [None]
  - CORONARY ARTERY OCCLUSION [None]
  - DEPRESSED LEVEL OF CONSCIOUSNESS [None]
  - MYOCARDIAL INFARCTION [None]
  - PALPITATIONS [None]
  - RESTLESSNESS [None]
  - NAUSEA [None]
  - SEROTONIN SYNDROME [None]
  - CHEST PAIN [None]
  - WEIGHT INCREASED [None]
